FAERS Safety Report 8171041-6 (Version None)
Quarter: 2012Q1

REPORT INFORMATION
  Report Type: 
  Country: None (occurrence: None)
  Receive Date: 20120228
  Receipt Date: 20120216
  Transmission Date: 20120608
  Serious: Yes (Other)
  Sender: FDA-Public Use
  Company Number: PHFR2010GB01529

PATIENT
  Sex: Female

DRUGS (11)
  1. CLOZARIL [Suspect]
     Indication: SCHIZOPHRENIA
     Dosage: 500 MG, QD
     Route: 048
     Dates: start: 20051101
  2. VENLAFAXINE [Concomitant]
     Indication: DEPRESSION
     Dosage: 300 MG, DAILY
     Route: 048
  3. CLOZARIL [Suspect]
     Route: 048
     Dates: start: 20110509
  4. MIRTAZAPINE [Concomitant]
     Indication: ANXIETY
  5. CLOZARIL [Suspect]
     Dosage: 400 MG, QD
     Route: 048
     Dates: end: 20101117
  6. MIRTAZAPINE [Concomitant]
     Indication: DEPRESSION
     Dosage: 30 MG, DAILY
     Route: 048
  7. DIAZEPAM [Concomitant]
     Indication: ANXIETY
  8. RABEPRAZOLE SODIUM [Concomitant]
     Indication: ABDOMINAL DISCOMFORT
     Dosage: 10 MG, UNK
     Route: 048
  9. VENLAFAXINE [Concomitant]
     Indication: ANXIETY
  10. HYOSCINE HYDROBROMIDE [Concomitant]
     Dosage: 1.2 MG, DAILY
     Route: 048
  11. DIAZEPAM [Concomitant]
     Indication: DEPRESSION
     Route: 048

REACTIONS (10)
  - WEIGHT DECREASED [None]
  - HALLUCINATION [None]
  - SYSTEMIC LUPUS ERYTHEMATOSUS [None]
  - ORTHOSTATIC HYPOTENSION [None]
  - NEUTROPENIA [None]
  - CHOLELITHIASIS [None]
  - SYNCOPE [None]
  - WHITE BLOOD CELL COUNT DECREASED [None]
  - LIVER FUNCTION TEST ABNORMAL [None]
  - SCHIZOPHRENIA [None]
